FAERS Safety Report 7552491-5 (Version None)
Quarter: 2011Q2

REPORT INFORMATION
  Report Type: 
  Country: None (occurrence: None)
  Receive Date: 20110616
  Receipt Date: 20110615
  Transmission Date: 20111010
  Serious: No
  Sender: FDA-Public Use
  Company Number: US-PFIZER INC-2011131252

PATIENT
  Sex: Male
  Weight: 88.435 kg

DRUGS (5)
  1. LIPITOR [Concomitant]
     Indication: BLOOD CHOLESTEROL INCREASED
     Dosage: 20 MG, 1X/DAY
  2. SYNTHROID [Concomitant]
     Indication: HYPOTHYROIDISM
     Dosage: 125 UG, 1X/DAY
  3. FEXOFENADINE [Concomitant]
     Indication: HYPERSENSITIVITY
     Dosage: 180 MG, 1X/DAY
  4. LISINOPRIL [Concomitant]
     Indication: HYPERTENSION
     Dosage: 20 MG, 1X/DAY
  5. VIAGRA [Suspect]
     Indication: ERECTILE DYSFUNCTION
     Dosage: 100 MG, WEEKLY

REACTIONS (1)
  - HEADACHE [None]
